FAERS Safety Report 7718941-6 (Version None)
Quarter: 2011Q3

REPORT INFORMATION
  Report Type: 
  Country: None (occurrence: None)
  Receive Date: 20110830
  Receipt Date: 20101022
  Transmission Date: 20111222
  Serious: Yes (Other)
  Sender: FDA-Public Use
  Company Number: US-GLAXOSMITHKLINE-A0890323A

PATIENT
  Sex: Female
  Weight: 100 kg

DRUGS (10)
  1. DIOVAN [Concomitant]
  2. AVANDIA [Suspect]
     Indication: DIABETES MELLITUS
     Dosage: 4MG TWICE PER DAY
     Route: 048
     Dates: start: 20050101
  3. LIPITOR [Concomitant]
  4. SIMAVASTATIN [Concomitant]
  5. TRICOR [Concomitant]
  6. PREDNISONE [Concomitant]
  7. CELEBREX [Concomitant]
  8. XANAX [Concomitant]
  9. DETROL [Concomitant]
  10. ACTOS [Concomitant]

REACTIONS (2)
  - DEEP VEIN THROMBOSIS [None]
  - CARDIOVASCULAR DISORDER [None]
